FAERS Safety Report 20104349 (Version 3)
Quarter: 2022Q4

REPORT INFORMATION
  Report Type: Spontaneous
  Country: US (occurrence: US)
  Receive Date: 20211123
  Receipt Date: 20221115
  Transmission Date: 20230113
  Serious: Yes (Other)
  Sender: FDA-Public Use
  Company Number: US-AMNEAL PHARMACEUTICALS-2021-AMRX-03701

PATIENT
  Age: 14 Year
  Sex: Female

DRUGS (3)
  1. ISOTRETINOIN [Suspect]
     Active Substance: ISOTRETINOIN
     Indication: Acne
     Dosage: 20 MILLIGRAM, DAILY
     Route: 065
     Dates: start: 202011, end: 20210831
  2. ISOTRETINOIN [Suspect]
     Active Substance: ISOTRETINOIN
     Dosage: 10MG, UNK
     Route: 065
  3. DELTASONE [Concomitant]
     Active Substance: PREDNISONE
     Indication: Product used for unknown indication
     Dosage: 1 TABLETS, DAILY
     Route: 048
     Dates: start: 20210726, end: 20210831

REACTIONS (2)
  - Intentional self-injury [Unknown]
  - Mood altered [Unknown]

NARRATIVE: CASE EVENT DATE: 20210831
